FAERS Safety Report 15971914 (Version 2)
Quarter: 2019Q4

REPORT INFORMATION
  Report Type: Spontaneous
  Country: US (occurrence: US)
  Receive Date: 20190215
  Receipt Date: 20191009
  Transmission Date: 20200122
  Serious: Yes (Hospitalization, Other)
  Sender: FDA-Public Use
  Company Number: US-SUN PHARMACEUTICAL INDUSTRIES LTD-2019R1-199008

PATIENT
  Age: 65 Year
  Sex: Female

DRUGS (3)
  1. MIDODRINE [Suspect]
     Active Substance: MIDODRINE
     Indication: ORTHOSTATIC HYPOTENSION
     Dosage: UNK UNK, TID (STARTED AT 2.5 MG TID AND TITRATED TO 20 MG TID)
     Route: 065
  2. LOSARTAN. [Suspect]
     Active Substance: LOSARTAN
     Indication: SUPINE HYPERTENSION
     Dosage: UNK UNK, QD (STARTED AT 50 MG HS AND TITRATED TO 100 MG HS)
     Route: 065
  3. CLONIDINE. [Suspect]
     Active Substance: CLONIDINE
     Indication: SUPINE HYPERTENSION
     Dosage: UNK UNK, QD (0.1 TO 0.2 MG HS WAS ADDED TO THE NIGHT TIME REGIMEN)
     Route: 065

REACTIONS (3)
  - Condition aggravated [Unknown]
  - Haemorrhagic stroke [Unknown]
  - Syncope [Recovered/Resolved]
